FAERS Safety Report 6828095-6 (Version None)
Quarter: 2010Q3

REPORT INFORMATION
  Report Type: 
  Country: None (occurrence: None)
  Receive Date: 20100708
  Receipt Date: 20100708
  Transmission Date: 20110219
  Serious: Yes (Other)
  Sender: FDA-Public Use
  Company Number: None

PATIENT
  Age: 27 Year
  Sex: Male
  Weight: 65.318 kg

DRUGS (1)
  1. TERBUTALINE SULFATE [Suspect]

REACTIONS (10)
  - DRUG EXPOSURE DURING PREGNANCY [None]
  - HYPERTENSION [None]
  - HYPOAESTHESIA [None]
  - HYPOAESTHESIA ORAL [None]
  - MULTIPLE INJURIES [None]
  - PARAESTHESIA [None]
  - PARAESTHESIA OF GENITAL FEMALE [None]
  - PARAESTHESIA ORAL [None]
  - POLYMORPHIC ERUPTION OF PREGNANCY [None]
  - PRE-ECLAMPSIA [None]
